FAERS Safety Report 6939598-8 (Version None)
Quarter: 2010Q3

REPORT INFORMATION
  Report Type: 
  Country: None (occurrence: None)
  Receive Date: 20100820
  Receipt Date: 20100805
  Transmission Date: 20110219
  Serious: Yes (Life-Threatening, Hospitalization, Other)
  Sender: FDA-Public Use
  Company Number: GB-ACCORD-005364

PATIENT
  Age: 59 Year
  Sex: Male

DRUGS (18)
  1. SIMVASTATIN [Suspect]
     Indication: PRODUCT USED FOR UNKNOWN INDICATION
     Dosage: 20.00MG 1.00 PER / ORAL 1.0 DAYS
     Route: 048
  2. CLARITHROMYCIN [Suspect]
     Indication: PRODUCT USED FOR UNKNOWN INDICATION
     Dosage: 250.00 MG 2.00 PE. / R 1.0 DAYS
  3. FUSIDIN (FUSIDIN) [Suspect]
     Indication: ARTHRITIS BACTERIAL
     Dosage: 500.00MG / 3.00 PER - 1.0 DAYS
  4. GLICLAZIDE (GLICLAZIDE) [Concomitant]
  5. (ALFACALCIDOL (ALFACALCIDOL) [Concomitant]
  6. ALLOPURINOL [Concomitant]
  7. ATENOLOL [Concomitant]
  8. CALCICHEW (CALCICHEW) [Concomitant]
  9. CEFTRIAXONE [Concomitant]
  10. CLOPIDOGREL [Concomitant]
  11. DIPYRIDAMOLE [Concomitant]
  12. ERYTHROPOETIN (ERYTHROPOETIN) [Concomitant]
  13. FLOXACILLIN SODIUM [Concomitant]
  14. FOLIC ACID [Concomitant]
  15. GENTAMICIN (GENTAMINCIN) [Concomitant]
  16. IRON (SUCROSE) (IRON SUCROSE) [Concomitant]
  17. LANSOPRAZOLE [Concomitant]
  18. OROVETE (OROVITE) [Concomitant]

REACTIONS (2)
  - DRUG INTERACTION [None]
  - RHABDOMYOLYSIS [None]
